FAERS Safety Report 23602632 (Version 1)
Quarter: 2024Q1

REPORT INFORMATION
  Report Type: Spontaneous
  Country: US (occurrence: None)
  Receive Date: 20240306
  Receipt Date: 20240306
  Transmission Date: 20240410
  Serious: Yes (unspecified)
  Sender: FDA-Public Use
  Company Number: None

PATIENT
  Age: 78 Year
  Sex: Male
  Weight: 72.57 kg

DRUGS (6)
  1. DUVELISIB [Suspect]
     Active Substance: DUVELISIB
  2. FLOMAX [Concomitant]
     Active Substance: TAMSULOSIN HYDROCHLORIDE
  3. TIMALOL [Concomitant]
  4. LATANOPROST [Concomitant]
     Active Substance: LATANOPROST
  5. AMBIEN [Concomitant]
     Active Substance: ZOLPIDEM TARTRATE
  6. HERBAL [Concomitant]

REACTIONS (8)
  - Alopecia [None]
  - Neuropathy peripheral [None]
  - Cutaneous T-cell lymphoma [None]
  - Aphthous ulcer [None]
  - Oral candidiasis [None]
  - Erythema [None]
  - Liver disorder [None]
  - Therapy cessation [None]

NARRATIVE: CASE EVENT DATE: 20230901
